FAERS Safety Report 11795791 (Version 1)
Quarter: 2015Q4

REPORT INFORMATION
  Report Type: Spontaneous
  Country: US (occurrence: US)
  Receive Date: 20151202
  Receipt Date: 20151202
  Transmission Date: 20160305
  Serious: No
  Sender: FDA-Public Use
  Company Number: GXBR2014US002497

PATIENT
  Sex: Female

DRUGS (1)
  1. BISOPROLOL FUMARATE TABLETS [Suspect]
     Active Substance: BISOPROLOL FUMARATE
     Indication: VENTRICULAR EXTRASYSTOLES
     Dosage: UNK DF, UNK
     Route: 048

REACTIONS (1)
  - Ventricular extrasystoles [Unknown]
